FAERS Safety Report 8490429-7 (Version None)
Quarter: 2012Q3

REPORT INFORMATION
  Report Type: 
  Country: None (occurrence: None)
  Receive Date: 20120705
  Receipt Date: 20120626
  Transmission Date: 20120928
  Serious: Yes (Hospitalization)
  Sender: FDA-Public Use
  Company Number: US-SANOFI-AVENTIS-2012SA045786

PATIENT
  Sex: Male

DRUGS (3)
  1. SOLOSTAR [Suspect]
     Indication: TYPE 2 DIABETES MELLITUS
     Dates: start: 20111101
  2. NOVOLOG [Suspect]
     Route: 065
  3. LANTUS [Suspect]
     Indication: TYPE 2 DIABETES MELLITUS
     Dosage: TOOK 33 UNITS IN THE MORNING AND EVENING
     Route: 058
     Dates: start: 20111101

REACTIONS (6)
  - RASH [None]
  - PRURITUS [None]
  - BLOOD GLUCOSE DECREASED [None]
  - HYPERSENSITIVITY [None]
  - HEART RATE INCREASED [None]
  - VISION BLURRED [None]
